FAERS Safety Report 20415886 (Version 1)
Quarter: 2022Q1

REPORT INFORMATION
  Report Type: Spontaneous
  Country: CZ (occurrence: CZ)
  Receive Date: 20220202
  Receipt Date: 20220202
  Transmission Date: 20220423
  Serious: Yes (Other)
  Sender: FDA-Public Use
  Company Number: CZ-NOVARTISPH-NVSC2021CZ291590

PATIENT
  Age: 38 Year
  Sex: Female

DRUGS (2)
  1. CYCLOSPORINE [Suspect]
     Active Substance: CYCLOSPORINE
     Indication: Dermatitis atopic
     Dosage: 100 MG, QD (2 MG/KG)
     Route: 065
     Dates: start: 201910
  2. CYCLOSPORINE [Suspect]
     Active Substance: CYCLOSPORINE
     Dosage: 50 MG, QD (DOSE REDUCED)
     Route: 065

REACTIONS (4)
  - Tremor [Not Recovered/Not Resolved]
  - Dyspepsia [Not Recovered/Not Resolved]
  - Drug intolerance [Not Recovered/Not Resolved]
  - Dysgraphia [Not Recovered/Not Resolved]

NARRATIVE: CASE EVENT DATE: 20190101
